FAERS Safety Report 4851721-8 (Version None)
Quarter: 2005Q4

REPORT INFORMATION
  Report Type: 
  Country: None (occurrence: None)
  Receive Date: 20051209
  Receipt Date: 20051206
  Transmission Date: 20060501
  Serious: No
  Sender: FDA-Public Use
  Company Number: 200208465

PATIENT
  Age: 72 Year
  Sex: Male

DRUGS (1)
  1. STREPTOKINASE (STREPTOKINASE)  (UNKNOWN) [Suspect]
     Indication: MYOCARDIAL INFARCTION
     Dosage: 1.5 MIU DAILY

REACTIONS (5)
  - ANGLE CLOSURE GLAUCOMA [None]
  - HYPOPYON [None]
  - IMMUNE SYSTEM DISORDER [None]
  - IRIDOCYCLITIS [None]
  - UVEITIS [None]
